FAERS Safety Report 9126744 (Version 2)
Quarter: 2013Q1

REPORT INFORMATION
  Report Type: Report from Study
  Country: JP (occurrence: JP)
  Receive Date: 20130122
  Receipt Date: 20130318
  Transmission Date: 20140127
  Serious: Yes (Other)
  Sender: FDA-Public Use
  Company Number: JP-UCBSA-075939

PATIENT
  Age: 21 Year
  Sex: Female
  Weight: 74 kg

DRUGS (12)
  1. E KEPPRA [Suspect]
     Indication: PARTIAL SEIZURES WITH SECONDARY GENERALISATION
     Route: 048
     Dates: start: 20110805, end: 20110902
  2. E KEPPRA [Suspect]
     Indication: PARTIAL SEIZURES WITH SECONDARY GENERALISATION
     Dosage: DAILY DOSE: 250 MG
     Route: 048
     Dates: start: 20110722, end: 20110804
  3. RIVOTRIL [Concomitant]
     Indication: PARTIAL SEIZURES WITH SECONDARY GENERALISATION
     Dosage: DAILY DOSE: 0.5 MG
     Route: 048
     Dates: start: 20110805, end: 20110818
  4. RIVOTRIL [Concomitant]
     Indication: PARTIAL SEIZURES WITH SECONDARY GENERALISATION
     Dosage: DAILY DOSE: 0.5 MG
     Route: 048
     Dates: start: 20110805, end: 20110818
  5. RIVOTRIL [Concomitant]
     Indication: PARTIAL SEIZURES WITH SECONDARY GENERALISATION
     Dosage: DAILY DOSE: 1 MG
     Route: 048
     Dates: end: 20110804
  6. RIVOTRIL [Concomitant]
     Indication: PARTIAL SEIZURES WITH SECONDARY GENERALISATION
     Dosage: DAILY DOSE: 1 MG
     Route: 048
     Dates: end: 20110804
  7. MYSTAN [Concomitant]
     Indication: PARTIAL SEIZURES WITH SECONDARY GENERALISATION
     Dosage: DAILY DOSE : 10 MG
     Route: 048
  8. BENET [Concomitant]
     Dosage: DAILY DOSE: 2.5 MG
     Route: 048
  9. FAMOTIDINE [Concomitant]
     Dosage: DAILY DOSE: 40 MG
     Route: 048
  10. IMURAN [Concomitant]
     Dosage: DAILY DOSE: 10 MG
     Route: 048
  11. PREDONINE [Concomitant]
     Dosage: DAILY DOSE: 10 MG
     Route: 048
  12. MAGNESIUM OXIDE [Concomitant]
     Dosage: DAILY DOSE: 2 G
     Route: 048

REACTIONS (1)
  - Multiple sclerosis relapse [Recovered/Resolved]
